FAERS Safety Report 9240125 (Version 3)
Quarter: 2013Q2

REPORT INFORMATION
  Report Type: Report from Study
  Country: US (occurrence: US)
  Receive Date: 20130418
  Receipt Date: 20130618
  Transmission Date: 20140414
  Serious: Yes (Hospitalization)
  Sender: FDA-Public Use
  Company Number: US-ACTELION-A-NJ2013-82163

PATIENT
  Age: 41 Year
  Sex: Female

DRUGS (2)
  1. VELETRI [Suspect]
     Indication: PULMONARY ARTERIAL HYPERTENSION
     Dosage: 19 NG/KG, PER MIN
     Route: 041
     Dates: start: 20101111
  2. COUMADIN [Concomitant]

REACTIONS (3)
  - Cardiac operation [Recovered/Resolved]
  - Device related infection [Recovered/Resolved]
  - Bacterial infection [Recovered/Resolved]
